FAERS Safety Report 9348944 (Version 1)
Quarter: 2013Q2

REPORT INFORMATION
  Report Type: Spontaneous
  Country: US (occurrence: US)
  Receive Date: 20130614
  Receipt Date: 20130614
  Transmission Date: 20140414
  Serious: Yes (Other)
  Sender: FDA-Public Use
  Company Number: US-JHP PHARMACEUTICALS, LLC-JHP201300355

PATIENT
  Age: 28 Year
  Sex: Female

DRUGS (5)
  1. ADRENALIN [Suspect]
     Indication: SHOCK
  2. DOBUTAMINE [Suspect]
     Indication: SHOCK
  3. ANTIBIOTICS [Concomitant]
     Indication: SEPTIC SHOCK
  4. STEROID [Concomitant]
     Indication: SHOCK
  5. VASOPRESSOR [Concomitant]
     Indication: HYPOTENSION

REACTIONS (1)
  - Drug ineffective [Recovered/Resolved]
